FAERS Safety Report 4610386-0 (Version None)
Quarter: 2005Q1

REPORT INFORMATION
  Report Type: 
  Country: None (occurrence: None)
  Receive Date: 20050314
  Receipt Date: 20050301
  Transmission Date: 20050727
  Serious: Yes (Other)
  Sender: FDA-Public Use
  Company Number: HQWYE771502MAR05

PATIENT
  Age: 63 Year
  Sex: Female

DRUGS (5)
  1. RAPAMUNE [Suspect]
     Indication: IMMUNOSUPPRESSANT DRUG THERAPY
     Dosage: 5 MG 1X PER 1 DAY
  2. MYCOPHENOLATE MOFETIL (MYCOPHENOLATE MOFETIL) [Concomitant]
  3. PREDNISONE [Concomitant]
  4. VALGANCICLOVIR (VALGANCICLOVIR) [Concomitant]
  5. LAMIVUDINE [Concomitant]

REACTIONS (4)
  - BLOOD LACTATE DEHYDROGENASE INCREASED [None]
  - PLATELET COUNT DECREASED [None]
  - RETICULOCYTE COUNT DECREASED [None]
  - THROMBOTIC MICROANGIOPATHY [None]
